FAERS Safety Report 6669301-0 (Version None)
Quarter: 2010Q2

REPORT INFORMATION
  Report Type: 
  Country: None (occurrence: None)
  Receive Date: 20100406
  Receipt Date: 20100315
  Transmission Date: 20101027
  Serious: No
  Sender: FDA-Public Use
  Company Number: US-BAYER-201017369NA

PATIENT
  Age: 72 Year
  Sex: Female
  Weight: 58 kg

DRUGS (5)
  1. MAGNEVIST [Suspect]
     Indication: NUCLEAR MAGNETIC RESONANCE IMAGING BRAIN
     Dosage: TOTAL DAILY DOSE: 11 ML  UNIT DOSE: 100 ML
     Route: 042
     Dates: start: 20100315, end: 20100315
  2. ESTRADIOL [Concomitant]
  3. HYDROCHLOROTHIAZIDE [Concomitant]
  4. QUINAPRIL [Concomitant]
  5. LEXAPRO [Concomitant]

REACTIONS (4)
  - COUGH [None]
  - ERYTHEMA [None]
  - PRURITUS [None]
  - URTICARIA [None]
